FAERS Safety Report 4785432-4 (Version None)
Quarter: 2005Q4

REPORT INFORMATION
  Report Type: 
  Country: None (occurrence: None)
  Receive Date: 20051003
  Receipt Date: 20050902
  Transmission Date: 20060501
  Serious: Yes (Hospitalization)
  Sender: FDA-Public Use
  Company Number: BE-ABBOTT-05P-013-0310431-00

PATIENT
  Sex: Female

DRUGS (20)
  1. ZEMPLAR [Suspect]
     Indication: DRUG USE FOR UNKNOWN INDICATION
     Dosage: NOT REPORTED
     Dates: start: 20050711
  2. EPOGEN [Concomitant]
     Indication: ANAEMIA
     Dates: start: 20050623
  3. FOLIC ACID [Concomitant]
     Indication: ANAEMIA
     Dates: start: 20050224
  4. FOLIC ACID [Concomitant]
     Indication: VITAMIN SUPPLEMENTATION
  5. ALPRAZOLAM [Concomitant]
     Indication: ANXIETY
     Dates: start: 20040317
  6. CALCIUM CARBONATE [Concomitant]
     Indication: DIALYSIS
     Dates: start: 20040224
  7. CALCIUM CARBONATE [Concomitant]
     Indication: MINERAL SUPPLEMENTATION
  8. BISOPROLOL [Concomitant]
     Indication: HYPERTENSION
     Dates: start: 20040224
  9. LORAZEPAM [Concomitant]
     Indication: SLEEP DISORDER
     Dates: start: 20040224
  10. METHYLPREDNISOLONE [Concomitant]
     Indication: IMMUNOSUPPRESSANT DRUG THERAPY
     Dates: start: 20040224
  11. ESOMEPRAZOLE [Concomitant]
     Indication: OESOPHAGITIS
     Dates: start: 20041125
  12. CLOPIDOGREL [Concomitant]
     Indication: THROMBOSIS PROPHYLAXIS
     Dates: start: 20041125
  13. PRAVASTATIN [Concomitant]
     Indication: BLOOD CHOLESTEROL
     Dates: start: 20040224
  14. PRAVASTATIN [Concomitant]
     Indication: DRUG THERAPY
  15. TACROLIMUS [Concomitant]
     Indication: IMMUNOSUPPRESSANT DRUG THERAPY
     Dates: start: 20040224
  16. SEVELAMER [Concomitant]
     Indication: BLOOD PHOSPHORUS
     Dates: start: 20050215
  17. SEVELAMER [Concomitant]
     Indication: DRUG THERAPY
  18. RIBOFLAVIN TAB [Concomitant]
     Indication: MYALGIA
     Dates: start: 20040224
  19. LISINOPRIL [Concomitant]
     Indication: HYPERTENSION
     Dates: start: 20050610, end: 20050808
  20. LISINOPRIL EG [Concomitant]
     Indication: HYPERTENSION
     Dates: start: 20050809

REACTIONS (5)
  - BRONCHOPNEUMONIA [None]
  - DIARRHOEA [None]
  - DIFFICULTY IN WALKING [None]
  - NAUSEA [None]
  - VOMITING [None]
